FAERS Safety Report 5092599-X (Version None)
Quarter: 2006Q3

REPORT INFORMATION
  Report Type: 
  Country: None (occurrence: None)
  Receive Date: 20060828
  Receipt Date: 20060828
  Transmission Date: 20061208
  Serious: Yes (Life-Threatening)
  Sender: FDA-Public Use
  Company Number: None

PATIENT
  Age: 78 Year
  Sex: Female
  Weight: 61.6892 kg

DRUGS (4)
  1. ENBREL [Suspect]
     Indication: PSORIATIC ARTHROPATHY
     Dosage: 500 MG Q WK
  2. METHOTREXATE [Suspect]
     Indication: PSORIATIC ARTHROPATHY
     Dosage: 2.5 MG 6 Q WK
  3. METFORMIN/ GLYBURIDE [Concomitant]
  4. LIPITOR [Concomitant]

REACTIONS (2)
  - HEPATIC MASS [None]
  - HEPATIC NEOPLASM MALIGNANT [None]
